FAERS Safety Report 9447675 (Version 11)
Quarter: 2016Q1

REPORT INFORMATION
  Report Type: Report from Study
  Country: JP (occurrence: JP)
  Receive Date: 20130808
  Receipt Date: 20160324
  Transmission Date: 20160526
  Serious: Yes (Life-Threatening, Hospitalization, Disabling, Other)
  Sender: FDA-Public Use
  Company Number: JP-AMGEN-JPNCT2013055562

PATIENT
  Age: 61 Year
  Sex: Female
  Weight: 47 kg

DRUGS (15)
  1. ROMIPLOSTIM [Suspect]
     Active Substance: ROMIPLOSTIM
     Indication: PRODUCT USED FOR UNKNOWN INDICATION
     Dosage: 1 MUG/KG, QWK
     Route: 058
     Dates: start: 20110816
  2. REVOLADE [Concomitant]
     Active Substance: ELTROMBOPAG
     Indication: IMMUNE THROMBOCYTOPENIC PURPURA
  3. BONALON [Concomitant]
     Active Substance: ALENDRONATE SODIUM
     Indication: OSTEOPOROSIS
     Dosage: 5 MG, UNK
     Route: 048
  4. BONZOL                             /00428701/ [Concomitant]
     Indication: IMMUNE THROMBOCYTOPENIC PURPURA
     Dosage: 200 MG, UNK
     Route: 048
     Dates: start: 20120712, end: 20121121
  5. ALEVIATIN                          /00017401/ [Concomitant]
     Active Substance: PHENYTOIN SODIUM
     Indication: EPILEPSY
     Dosage: UNK
     Route: 065
  6. PRIMOBOLAN                         /00044802/ [Concomitant]
     Indication: IMMUNE THROMBOCYTOPENIC PURPURA
     Dosage: 10 MG, UNK
     Route: 048
     Dates: start: 20121122, end: 20130210
  7. EXCEGRAN [Concomitant]
     Active Substance: ZONISAMIDE
     Indication: EPILEPSY
     Dosage: UNK
     Route: 048
  8. PREDONINE [Concomitant]
     Active Substance: PREDNISOLONE\PREDNISOLONE ACETATE\PREDNISOLONE SODIUM SUCCINATE
     Indication: IMMUNE THROMBOCYTOPENIC PURPURA
     Dosage: 30 MG, UNK
     Route: 048
     Dates: start: 20110815, end: 20130215
  9. KEPPRA [Concomitant]
     Active Substance: LEVETIRACETAM
     Indication: EPILEPSY
     Dosage: UNK
     Route: 048
  10. REVOLADE [Concomitant]
     Active Substance: ELTROMBOPAG
     Indication: IMMUNE THROMBOCYTOPENIC PURPURA
     Dosage: 12.5 MG, UNK
     Route: 048
     Dates: start: 20111101, end: 20111205
  11. METHYLPREDNISOLONE SODIUM SUCCINATE. [Concomitant]
     Active Substance: METHYLPREDNISOLONE SODIUM SUCCINATE
     Indication: IMMUNE THROMBOCYTOPENIC PURPURA
     Dosage: 1000 MG, UNK
     Route: 065
     Dates: start: 20130212, end: 20130214
  12. GASTER [Concomitant]
     Active Substance: FAMOTIDINE
     Indication: GASTRITIS
     Dosage: UNK
     Route: 065
  13. NEXIUM [Concomitant]
     Active Substance: ESOMEPRAZOLE MAGNESIUM
     Indication: GASTRITIS
     Dosage: UNK
     Route: 048
  14. LANDSEN [Concomitant]
     Active Substance: CLONAZEPAM
     Indication: EPILEPSY
     Dosage: UNK
     Route: 048
  15. TAKEPRON [Concomitant]
     Active Substance: LANSOPRAZOLE
     Indication: GASTRITIS
     Dosage: UNK
     Route: 065

REACTIONS (12)
  - Nasopharyngitis [Recovering/Resolving]
  - Epistaxis [Recovering/Resolving]
  - Mouth haemorrhage [Recovering/Resolving]
  - Haemorrhagic diathesis [Unknown]
  - Renal disorder [Recovering/Resolving]
  - Anaemia [Recovering/Resolving]
  - Pulmonary alveolar haemorrhage [Recovered/Resolved]
  - Hypertension [Not Recovered/Not Resolved]
  - Renal disorder [Not Recovered/Not Resolved]
  - Platelet count decreased [Recovering/Resolving]
  - Renal disorder [Recovered/Resolved]
  - Liver disorder [Recovered/Resolved]

NARRATIVE: CASE EVENT DATE: 20110831
